FAERS Safety Report 8758536 (Version 1)
Quarter: 2012Q4

REPORT INFORMATION
  Report Type: Spontaneous
  Country: US (occurrence: None)
  Receive Date: 20120828
  Receipt Date: 20120828
  Transmission Date: 20130627
  Serious: No
  Sender: FDA-Public Use
  Company Number: None

PATIENT
  Age: 59 Year
  Weight: 87.09 kg

DRUGS (1)
  1. CYMBALTA [Suspect]
     Indication: PAIN
     Route: 048
     Dates: start: 20120424, end: 20120817

REACTIONS (6)
  - Micturition disorder [None]
  - Nightmare [None]
  - Hyperhidrosis [None]
  - Abdominal distension [None]
  - Dizziness [None]
  - Memory impairment [None]
